FAERS Safety Report 9770659 (Version 2)
Quarter: 2014Q3

REPORT INFORMATION
  Report Type: Spontaneous
  Country: US (occurrence: US)
  Receive Date: 20131218
  Receipt Date: 20140815
  Transmission Date: 20150326
  Serious: Yes (Hospitalization, Other)
  Sender: FDA-Public Use
  Company Number: US-009507513-1312USA008384

PATIENT
  Sex: Female

DRUGS (1)
  1. NUVARING [Suspect]
     Active Substance: ETHINYL ESTRADIOL\ETONOGESTREL
     Indication: CONTRACEPTION
     Dosage: UNK
     Route: 067

REACTIONS (12)
  - Deep vein thrombosis [Unknown]
  - Chest pain [Unknown]
  - Dehydration [Unknown]
  - Pulmonary embolism [Unknown]
  - Nausea [Unknown]
  - Adverse drug reaction [Unknown]
  - Vomiting [Unknown]
  - Benign cardiac neoplasm [Unknown]
  - Foot operation [Unknown]
  - Headache [Unknown]
  - Gastroenteritis viral [Recovered/Resolved]
  - Cerebral atrophy [Unknown]

NARRATIVE: CASE EVENT DATE: 201103
